FAERS Safety Report 7984910-4 (Version None)
Quarter: 2011Q4

REPORT INFORMATION
  Report Type: 
  Country: None (occurrence: None)
  Receive Date: 20111216
  Receipt Date: 20111006
  Transmission Date: 20120403
  Serious: No
  Sender: FDA-Public Use
  Company Number: US-ALLERGAN-1113276US

PATIENT
  Age: 55 Year
  Sex: Female

DRUGS (1)
  1. LATISSE [Suspect]
     Indication: GROWTH OF EYELASHES
     Dosage: 1 GTT, QHS
     Route: 061
     Dates: end: 20111005

REACTIONS (4)
  - EYELID OEDEMA [None]
  - ABNORMAL SENSATION IN EYE [None]
  - ERYTHEMA OF EYELID [None]
  - OCULAR HYPERAEMIA [None]
